FAERS Safety Report 5292694-6 (Version None)
Quarter: 2007Q2

REPORT INFORMATION
  Report Type: 
  Country: None (occurrence: None)
  Receive Date: 20070404
  Receipt Date: 20070323
  Transmission Date: 20071010
  Serious: Yes (Hospitalization)
  Sender: FDA-Public Use
  Company Number: SU-2007-005808

PATIENT
  Age: 74 Year
  Sex: Female
  Weight: 83.0083 kg

DRUGS (13)
  1. BENICAR [Suspect]
     Indication: HYPERTENSION
     Dosage: 20 MG QD PO
     Route: 048
     Dates: start: 20030601, end: 20060819
  2. CALCIUM WITH VITAMIN D [Concomitant]
  3. MEGA B [Concomitant]
  4. ASPIRIN [Concomitant]
  5. CRESTOR [Concomitant]
  6. AMBIEN [Concomitant]
  7. COQ10 [Concomitant]
  8. OMEGA 3 [Concomitant]
  9. NEXIUM [Concomitant]
  10. ALLEGRA [Concomitant]
  11. VIVELLE [Concomitant]
  12. HYDROCHLOROTHIAZIDE [Concomitant]
  13. VITAMIN CAP [Concomitant]

REACTIONS (15)
  - ALANINE AMINOTRANSFERASE INCREASED [None]
  - ANOREXIA [None]
  - ASPARTATE AMINOTRANSFERASE INCREASED [None]
  - COLITIS COLLAGENOUS [None]
  - COLITIS MICROSCOPIC [None]
  - DEHYDRATION [None]
  - DIARRHOEA [None]
  - FEEDING DISORDER [None]
  - FLATULENCE [None]
  - GASTRITIS [None]
  - HYPOKALAEMIA [None]
  - MUSCLE SPASMS [None]
  - OESOPHAGITIS [None]
  - ORAL INTAKE REDUCED [None]
  - WEIGHT DECREASED [None]
